FAERS Safety Report 4447482-7 (Version None)
Quarter: 2004Q3

REPORT INFORMATION
  Report Type: 
  Country: None (occurrence: None)
  Receive Date: 20040823
  Receipt Date: 20040510
  Transmission Date: 20050211
  Serious: No
  Sender: FDA-Public Use
  Company Number: PHEH2004US05114

PATIENT
  Age: 57 Year
  Sex: Female

DRUGS (8)
  1. ZELNORM [Suspect]
     Indication: IRRITABLE BOWEL SYNDROME
     Dosage: SEE IMAGE
     Route: 048
     Dates: start: 20040423, end: 20040501
  2. ZELNORM [Suspect]
     Indication: IRRITABLE BOWEL SYNDROME
     Dosage: SEE IMAGE
     Route: 048
     Dates: start: 20040510, end: 20040501
  3. ZESTRIL [Concomitant]
  4. CRESTOR [Concomitant]
  5. ASPIRIN [Concomitant]
  6. ESTRACE [Concomitant]
  7. MIRALAX [Concomitant]
  8. VIVELLE [Concomitant]

REACTIONS (4)
  - ASTHENIA [None]
  - IMPAIRED DRIVING ABILITY [None]
  - SOMNOLENCE [None]
  - THINKING ABNORMAL [None]
